FAERS Safety Report 4874680-0 (Version None)
Quarter: 2006Q1

REPORT INFORMATION
  Report Type: 
  Country: None (occurrence: None)
  Receive Date: 20060106
  Receipt Date: 20051005
  Transmission Date: 20060701
  Serious: Yes (Hospitalization)
  Sender: FDA-Public Use
  Company Number: US-MERCK-0510USA04388

PATIENT
  Age: 65 Year
  Sex: Female
  Weight: 55 kg

DRUGS (8)
  1. VIOXX [Suspect]
     Indication: PAIN
     Route: 048
     Dates: end: 20040911
  2. PREMARIN [Concomitant]
     Route: 065
  3. PRILOSEC [Concomitant]
     Route: 065
  4. LEXAPRO [Concomitant]
     Route: 065
  5. CARDURA [Concomitant]
     Route: 065
  6. TOPAMAX [Concomitant]
     Route: 065
  7. PHRENILIN FORTE [Concomitant]
     Route: 065
  8. [THERAPY UNSPECIFIED] [Concomitant]
     Route: 065

REACTIONS (17)
  - ARTHROPATHY [None]
  - CARDIOVASCULAR DISORDER [None]
  - CEREBROVASCULAR ACCIDENT [None]
  - COGNITIVE DISORDER [None]
  - DYSPHAGIA [None]
  - ECCHYMOSIS [None]
  - HYPOACUSIS [None]
  - HYPOAESTHESIA [None]
  - HYPOTENSION [None]
  - ISCHAEMIC CEREBRAL INFARCTION [None]
  - LIMB OPERATION [None]
  - MIGRAINE [None]
  - MUSCULOSKELETAL CHEST PAIN [None]
  - PRURITUS GENERALISED [None]
  - SPEECH DISORDER [None]
  - TENSION HEADACHE [None]
  - VISUAL FIELD DEFECT [None]
